FAERS Safety Report 7341851-3 (Version None)
Quarter: 2011Q1

REPORT INFORMATION
  Report Type: 
  Country: None (occurrence: None)
  Receive Date: 20110309
  Receipt Date: 20110225
  Transmission Date: 20110831
  Serious: Yes (Hospitalization)
  Sender: FDA-Public Use
  Company Number: US-ELI_LILLY_AND_COMPANY-US201102007520

PATIENT
  Sex: Male

DRUGS (7)
  1. ZYPREXA ZYDIS [Suspect]
     Dosage: 10 MG, 2/D
     Dates: start: 20110104, end: 20110114
  2. ZYPREXA [Suspect]
     Dosage: 30 MG, DAILY (1/D)
     Dates: start: 20110204
  3. ZYPREXA [Suspect]
     Indication: BIPOLAR DISORDER
     Dosage: 10 MG, 2/D
     Dates: start: 20110104, end: 20110114
  4. ZYPREXA [Suspect]
     Dosage: 20 MG, DAILY (1/D)
     Dates: start: 20110115, end: 20110130
  5. DEPAKOTE [Concomitant]
     Dosage: 2 G, DAILY (1/D)
  6. ZYPREXA [Suspect]
     Dosage: 25 MG, DAILY (1/D)
     Dates: start: 20110131, end: 20110203
  7. LITHIUM CARBONATE [Concomitant]
     Dosage: 900 MG, 2/D

REACTIONS (4)
  - OVERDOSE [None]
  - CONFUSIONAL STATE [None]
  - BIPOLAR I DISORDER [None]
  - DRUG INTERACTION [None]
